FAERS Safety Report 24691573 (Version 1)
Quarter: 2024Q4

REPORT INFORMATION
  Report Type: Spontaneous
  Country: CN (occurrence: CN)
  Receive Date: 20241203
  Receipt Date: 20241203
  Transmission Date: 20250115
  Serious: Yes (Other)
  Sender: PFIZER
  Company Number: CN-PFIZER INC-PV202400154741

PATIENT
  Age: 26 Year
  Sex: Female

DRUGS (4)
  1. MEROPENEM [Suspect]
     Active Substance: MEROPENEM
     Indication: Anti-infective therapy
     Dosage: 1.5 G, TID
  2. MEROPENEM [Suspect]
     Active Substance: MEROPENEM
     Dosage: 3 G, TID
  3. MEROPENEM [Suspect]
     Active Substance: MEROPENEM
     Dosage: 2 G, QID
  4. MEROPENEM [Suspect]
     Active Substance: MEROPENEM
     Dosage: 1 G, BID

REACTIONS (1)
  - Abortion [Unknown]
